FAERS Safety Report 18086077 (Version 1)
Quarter: 2020Q3

REPORT INFORMATION
  Report Type: Spontaneous
  Country: US (occurrence: US)
  Receive Date: 20200727
  Receipt Date: 20200727
  Transmission Date: 20201103
  Serious: Yes (Hospitalization, Other)
  Sender: FDA-Public Use
  Company Number: None

PATIENT
  Age: 53 Year
  Sex: Female
  Weight: 89.1 kg

DRUGS (3)
  1. DOXYCYCLINE. [Suspect]
     Active Substance: DOXYCYCLINE
     Indication: SINUSITIS
     Dosage: ?          QUANTITY:20 TABLET(S);?
     Route: 048
     Dates: start: 20200715, end: 20200716
  2. ATOVASTATIN [Concomitant]
     Active Substance: ATORVASTATIN
  3. LEVOTHYROXINE. [Concomitant]
     Active Substance: LEVOTHYROXINE

REACTIONS (10)
  - Migraine [None]
  - Back pain [None]
  - Eye swelling [None]
  - Memory impairment [None]
  - Visual impairment [None]
  - Vision blurred [None]
  - Photosensitivity reaction [None]
  - Diplopia [None]
  - Pain [None]
  - Hallucination, visual [None]

NARRATIVE: CASE EVENT DATE: 20200717
